FAERS Safety Report 7565748-9 (Version None)
Quarter: 2011Q2

REPORT INFORMATION
  Report Type: 
  Country: None (occurrence: None)
  Receive Date: 20110623
  Receipt Date: 20110615
  Transmission Date: 20111010
  Serious: Yes (Death, Life-Threatening, Other)
  Sender: FDA-Public Use
  Company Number: CA-GENZYME-THYM-1002313

PATIENT

DRUGS (14)
  1. INSULIN [Concomitant]
     Indication: BLOOD GLUCOSE ABNORMAL
  2. ATIVAN [Concomitant]
     Indication: SEDATION
  3. LASIX [Concomitant]
     Indication: DIURETIC THERAPY
  4. THYMOGLOBULIN [Suspect]
     Indication: PROPHYLAXIS AGAINST GRAFT VERSUS HOST DISEASE
     Dosage: 73 MG, ONCE
     Route: 042
     Dates: start: 20101207, end: 20101207
  5. PIPERACILLIN AND TAZOBACTAM [Concomitant]
     Indication: ANTIBIOTIC PROPHYLAXIS
  6. VALACYCLOVIR [Concomitant]
     Indication: ANTIVIRAL TREATMENT
  7. RANITIDINE [Concomitant]
     Indication: GASTROINTESTINAL DISORDER
  8. CYCLOSPORINE [Concomitant]
     Indication: PROPHYLAXIS AGAINST GRAFT VERSUS HOST DISEASE
  9. MORPHINE [Suspect]
     Indication: PAIN MANAGEMENT
     Route: 042
  10. THYMOGLOBULIN [Suspect]
     Dosage: 290 MG, ONCE
     Route: 042
     Dates: start: 20101208, end: 20101208
  11. HEPARIN [Concomitant]
     Indication: ANTICOAGULANT THERAPY
  12. METOPROLOL TARTRATE [Concomitant]
     Indication: HYPERTENSION
  13. METHOTREXATE [Concomitant]
     Indication: PROPHYLAXIS AGAINST GRAFT VERSUS HOST DISEASE
  14. MAGNESIUM [Concomitant]
     Indication: SUPPLEMENTATION THERAPY

REACTIONS (6)
  - PANCYTOPENIA [None]
  - ACUTE RESPIRATORY DISTRESS SYNDROME [None]
  - FEBRILE NEUTROPENIA [None]
  - ACUTE MYELOID LEUKAEMIA RECURRENT [None]
  - CYTOKINE RELEASE SYNDROME [None]
  - DYSPNOEA [None]
